FAERS Safety Report 25349317 (Version 2)
Quarter: 2025Q2

REPORT INFORMATION
  Report Type: Spontaneous
  Country: US (occurrence: US)
  Receive Date: 20250522
  Receipt Date: 20250528
  Transmission Date: 20250716
  Serious: No
  Sender: SANOFI AVENTIS
  Company Number: US-SA-2025SA146497

PATIENT
  Age: 45 Year
  Sex: Female

DRUGS (18)
  1. DUPIXENT [Suspect]
     Active Substance: DUPILUMAB
     Indication: Dermatitis atopic
     Dosage: 300 MG, QOW
     Route: 058
     Dates: start: 20240718
  2. CLOBETASOL [Concomitant]
     Active Substance: CLOBETASOL
  3. COLESTIPOL [Concomitant]
     Active Substance: COLESTIPOL
  4. DICYCLOMINE [Concomitant]
     Active Substance: DICYCLOMINE HYDROCHLORIDE
  5. ESCITALOPRAM [Concomitant]
     Active Substance: ESCITALOPRAM OXALATE
  6. ESTRADIOL [Concomitant]
     Active Substance: ESTRADIOL
  7. ESTRADIOL [Concomitant]
     Active Substance: ESTRADIOL
  8. FAMOTIDINE [Concomitant]
     Active Substance: FAMOTIDINE
  9. LORAZEPAM [Concomitant]
     Active Substance: LORAZEPAM
  10. MELOXICAM [Concomitant]
     Active Substance: MELOXICAM
  11. MYRBETRIQ [Concomitant]
     Active Substance: MIRABEGRON
  12. OMEPRAZOLE [Concomitant]
     Active Substance: OMEPRAZOLE
  13. PANTOPRAZOLE [Concomitant]
     Active Substance: PANTOPRAZOLE
  14. PROMETHAZINE [Concomitant]
     Active Substance: PROMETHAZINE HYDROCHLORIDE
  15. VILAZODONE [Concomitant]
     Active Substance: VILAZODONE
  16. VITAMIN C [Concomitant]
     Active Substance: ASCORBIC ACID
  17. VITAMIN D3 [Concomitant]
     Active Substance: CHOLECALCIFEROL
  18. VYVANSE [Concomitant]
     Active Substance: LISDEXAMFETAMINE DIMESYLATE

REACTIONS (4)
  - Sleep disorder due to a general medical condition [Not Recovered/Not Resolved]
  - Discomfort [Not Recovered/Not Resolved]
  - Rash [Not Recovered/Not Resolved]
  - Drug ineffective [Unknown]
